FAERS Safety Report 4638475-5 (Version None)
Quarter: 2005Q2

REPORT INFORMATION
  Report Type: 
  Country: None (occurrence: None)
  Receive Date: 20050418
  Receipt Date: 20050329
  Transmission Date: 20051028
  Serious: Yes (Hospitalization)
  Sender: FDA-Public Use
  Company Number: CA_050107691

PATIENT
  Age: 60 Year
  Sex: Female
  Weight: 69 kg

DRUGS (5)
  1. FORTEO [Suspect]
     Indication: OSTEOPOROSIS
     Dosage: 20 UG DAY
     Dates: start: 20041117, end: 20050322
  2. HYDROCHLOROTHIAZIDE [Concomitant]
  3. ATENOLOL [Concomitant]
  4. CALCIUM GLUCONATE [Concomitant]
  5. VITAMIN D [Concomitant]

REACTIONS (8)
  - BLOOD CALCIUM INCREASED [None]
  - CONDITION AGGRAVATED [None]
  - FALL [None]
  - HYPOAESTHESIA [None]
  - LOSS OF CONTROL OF LEGS [None]
  - NEOPLASM [None]
  - SPINAL DISORDER [None]
  - TENSION [None]
